FAERS Safety Report 16322206 (Version 1)
Quarter: 2019Q2

REPORT INFORMATION
  Report Type: Spontaneous
  Country: US (occurrence: US)
  Receive Date: 20190516
  Receipt Date: 20190516
  Transmission Date: 20190711
  Serious: Yes (Other)
  Sender: FDA-Public Use
  Company Number: US-TARO-2018TAR00963

PATIENT
  Sex: Female

DRUGS (3)
  1. OTHER UNSPECIFIED MEDICATIONS [Suspect]
     Active Substance: UNSPECIFIED INGREDIENT
     Indication: LUNG DISORDER
  2. OTHER UNSPECIFIED MEDICATIONS [Suspect]
     Active Substance: UNSPECIFIED INGREDIENT
     Indication: HYPOTHYROIDISM
  3. AMIODARONE HCL TABLET 200 MG [Suspect]
     Active Substance: AMIODARONE HYDROCHLORIDE
     Indication: ATRIAL FIBRILLATION
     Dosage: UNK
     Dates: start: 201206

REACTIONS (5)
  - Interstitial lung disease [Unknown]
  - Oedema [Unknown]
  - Off label use [Unknown]
  - Hypothyroidism [Unknown]
  - Unevaluable event [Unknown]

NARRATIVE: CASE EVENT DATE: 201206
